FAERS Safety Report 11617090 (Version 3)
Quarter: 2015Q4

REPORT INFORMATION
  Report Type: Spontaneous
  Country: IT (occurrence: IT)
  Receive Date: 20151009
  Receipt Date: 20151030
  Transmission Date: 20160304
  Serious: Yes (Other)
  Sender: FDA-Public Use
  Company Number: IT-BAYER-2015-435572

PATIENT
  Age: 54 Year
  Sex: Male

DRUGS (2)
  1. STIVARGA [Suspect]
     Active Substance: REGORAFENIB
     Indication: GASTROINTESTINAL STROMAL CANCER
     Dosage: 160 MG, QD
     Route: 048
     Dates: start: 20150801, end: 20150830
  2. STIVARGA [Suspect]
     Active Substance: REGORAFENIB
     Indication: GASTROINTESTINAL STROMAL CANCER
     Dosage: 120 MG, QD
     Route: 048
     Dates: start: 20150901, end: 20150915

REACTIONS (4)
  - Fatigue [None]
  - Gastrointestinal stromal cancer [None]
  - Palmar-plantar erythrodysaesthesia syndrome [None]
  - Decreased appetite [None]

NARRATIVE: CASE EVENT DATE: 20150815
